FAERS Safety Report 12253253 (Version 1)
Quarter: 2016Q2

REPORT INFORMATION
  Report Type: Spontaneous
  Country: US (occurrence: US)
  Receive Date: 20160411
  Receipt Date: 20160411
  Transmission Date: 20160815
  Serious: Yes (Other)
  Sender: FDA-Public Use
  Company Number: US-GLAXOSMITHKLINE-US2016046358

PATIENT
  Age: 53 Year
  Sex: Male

DRUGS (10)
  1. ADVAIR DISKUS [Suspect]
     Active Substance: FLUTICASONE PROPIONATE\SALMETEROL XINAFOATE
     Indication: CHRONIC OBSTRUCTIVE PULMONARY DISEASE
     Dosage: 1 PUFF(S), BID
     Route: 055
     Dates: start: 2014
  2. SULFAMETHOXAZOLE [Concomitant]
     Active Substance: SULFAMETHOXAZOLE
  3. CIPROFLOXACIN. [Concomitant]
     Active Substance: CIPROFLOXACIN
  4. TAMSULOSIN [Concomitant]
     Active Substance: TAMSULOSIN
  5. VENTOLIN [Suspect]
     Active Substance: ALBUTEROL SULFATE
     Indication: CHRONIC OBSTRUCTIVE PULMONARY DISEASE
     Dosage: UNK
     Route: 055
     Dates: start: 2014
  6. DOXYCYCLINE. [Concomitant]
     Active Substance: DOXYCYCLINE
  7. FINASTERIDE. [Concomitant]
     Active Substance: FINASTERIDE
  8. NITROFURANTOIN. [Concomitant]
     Active Substance: NITROFURANTOIN
  9. OXYCODONE [Concomitant]
     Active Substance: OXYCODONE
  10. SPIRIVA [Concomitant]
     Active Substance: TIOTROPIUM BROMIDE MONOHYDRATE

REACTIONS (3)
  - Prostate cancer [Unknown]
  - Neoplasm malignant [Unknown]
  - Burning sensation [Unknown]

NARRATIVE: CASE EVENT DATE: 201508
